FAERS Safety Report 11939973 (Version 1)
Quarter: 2016Q1

REPORT INFORMATION
  Report Type: Report from Study
  Country: JP (occurrence: JP)
  Receive Date: 20160122
  Receipt Date: 20160122
  Transmission Date: 20160526
  Serious: Yes (Hospitalization)
  Sender: FDA-Public Use
  Company Number: JP-WATSON-2015-29071

PATIENT
  Age: 99 Year
  Sex: Male

DRUGS (4)
  1. RAPAFLO [Suspect]
     Active Substance: SILODOSIN
     Indication: BENIGN PROSTATIC HYPERPLASIA
     Dosage: 8 MG, DAILY
     Route: 048
     Dates: start: 20150325, end: 20150527
  2. AVOLVE [Concomitant]
     Active Substance: DUTASTERIDE
     Indication: LOWER URINARY TRACT SYMPTOMS
     Dosage: 0.5 MG, DAILY
     Route: 048
     Dates: end: 20150527
  3. URITOS [Concomitant]
     Active Substance: IMIDAFENACIN
     Indication: LOWER URINARY TRACT SYMPTOMS
     Dosage: 0.2 MG, DAILY
     Route: 048
     Dates: end: 20150527
  4. RAPAFLO [Suspect]
     Active Substance: SILODOSIN
     Indication: DYSURIA

REACTIONS (3)
  - Gastrointestinal haemorrhage [Unknown]
  - Pneumonia [Unknown]
  - Injury [Unknown]
